FAERS Safety Report 24794094 (Version 1)
Quarter: 2024Q4

REPORT INFORMATION
  Report Type: Spontaneous
  Country: US (occurrence: None)
  Receive Date: 20241231
  Receipt Date: 20241231
  Transmission Date: 20250114
  Serious: Yes (Hospitalization)
  Sender: Public
  Company Number: None

PATIENT
  Sex: Female

DRUGS (3)
  1. SYNAGIS [Suspect]
     Active Substance: PALIVIZUMAB
     Indication: Bronchopulmonary dysplasia
     Dosage: FREQ: INJECT 15MG PER KG IN THE MUSCLE ONCE PER MONTH
     Route: 030
     Dates: start: 20241203
  2. OMEPRAZOLE [Concomitant]
     Active Substance: OMEPRAZOLE
  3. POLY-VI-SOL DRO [Concomitant]

REACTIONS (1)
  - Respiratory syncytial virus infection [None]
